FAERS Safety Report 7217916-3 (Version None)
Quarter: 2011Q1

REPORT INFORMATION
  Report Type: 
  Country: None (occurrence: None)
  Receive Date: 20110110
  Receipt Date: 20110107
  Transmission Date: 20110831
  Serious: Yes (Death)
  Sender: FDA-Public Use
  Company Number: IT-BRISTOL-MYERS SQUIBB COMPANY-15475650

PATIENT
  Age: 87 Year
  Sex: Male

DRUGS (3)
  1. ASPIRIN [Suspect]
     Indication: ACUTE MYOCARDIAL INFARCTION
     Dates: start: 20091113, end: 20101206
  2. COUMADIN [Suspect]
     Indication: INTRACARDIAC THROMBUS
     Dosage: 1 DF:2 UNITS/DAY
     Dates: start: 20091113, end: 20101206
  3. IRBESARTAN [Concomitant]
     Route: 048

REACTIONS (1)
  - LOSS OF CONSCIOUSNESS [None]
